FAERS Safety Report 17419853 (Version 4)
Quarter: 2020Q3

REPORT INFORMATION
  Report Type: Spontaneous
  Country: US (occurrence: US)
  Receive Date: 20200214
  Receipt Date: 20200807
  Transmission Date: 20201102
  Serious: No
  Sender: FDA-Public Use
  Company Number: US-TEVA-2020-US-1170270

PATIENT
  Sex: Male

DRUGS (22)
  1. LISPRO [Concomitant]
     Active Substance: INSULIN LISPRO
  2. ZOFRAN [Concomitant]
     Active Substance: ONDANSETRON HYDROCHLORIDE
  3. TYLENOL [Concomitant]
     Active Substance: ACETAMINOPHEN
  4. METFORMIN HCL [Concomitant]
     Active Substance: METFORMIN HYDROCHLORIDE
  5. ASPIRIN. [Concomitant]
     Active Substance: ASPIRIN
     Route: 065
  6. THC FREE [Concomitant]
  7. METOPROLOL SUCCINATE. [Concomitant]
     Active Substance: METOPROLOL SUCCINATE
  8. SYNRIBO [Suspect]
     Active Substance: OMACETAXINE MEPESUCCINATE
     Dosage: 2.8 MG/0.80ML TWICE DAILY FOR 7 DAYS OF A 28 DAY CYCLE
     Route: 065
     Dates: start: 20180622
  9. ALLEGRA [Concomitant]
     Active Substance: FEXOFENADINE HYDROCHLORIDE
  10. TAMSULOSIN [Concomitant]
     Active Substance: TAMSULOSIN
  11. SYNRIBO [Suspect]
     Active Substance: OMACETAXINE MEPESUCCINATE
     Dosage: 2.8 MG/ 0.8 ML BID X 7 DAYS OF 28 DAY CYCLE
     Dates: start: 20191217
  12. IMATINIB. [Suspect]
     Active Substance: IMATINIB MESYLATE
     Route: 065
  13. DEGLUDEC [Concomitant]
  14. ICLUSIG [Concomitant]
     Active Substance: PONATINIB
  15. ALLOPURINOL. [Concomitant]
     Active Substance: ALLOPURINOL
  16. ATORVASTATIN [Concomitant]
     Active Substance: ATORVASTATIN
  17. SYNRIBO [Suspect]
     Active Substance: OMACETAXINE MEPESUCCINATE
     Indication: CHRONIC MYELOID LEUKAEMIA
     Dosage: 2.8 MG/ 0.8 ML BID X 7 DAYS OF 28 DAY CYCLE
     Dates: start: 20180625
  18. SYNRIBO [Suspect]
     Active Substance: OMACETAXINE MEPESUCCINATE
     Dosage: 2( 7DAYS/ MONTH) EVERY TIME
  19. LIPITOR [Concomitant]
     Active Substance: ATORVASTATIN CALCIUM
  20. BIOTIN [Concomitant]
     Active Substance: BIOTIN
  21. HYDROCHLOROTHIAZIDE. [Concomitant]
     Active Substance: HYDROCHLOROTHIAZIDE
  22. LOSARTAN/HCTZ [Concomitant]
     Active Substance: HYDROCHLOROTHIAZIDE\LOSARTAN

REACTIONS (7)
  - Splenomegaly [Recovered/Resolved]
  - Asthenia [Unknown]
  - Pain [Unknown]
  - Arthralgia [Recovered/Resolved]
  - Poor quality sleep [Not Recovered/Not Resolved]
  - Nausea [Recovered/Resolved]
  - Migraine [Not Recovered/Not Resolved]
